FAERS Safety Report 8707794 (Version 2)
Quarter: 2013Q4

REPORT INFORMATION
  Report Type: Spontaneous
  Country: US (occurrence: US)
  Receive Date: 20120806
  Receipt Date: 20131101
  Transmission Date: 20140711
  Serious: No
  Sender: FDA-Public Use
  Company Number: US-009507513-1207USA011564

PATIENT
  Age: 25 Year
  Sex: Female

DRUGS (3)
  1. NUVARING [Suspect]
     Dosage: UNK
     Route: 067
     Dates: start: 200608
  2. ZOVIRAX [Concomitant]
  3. VALTREX [Concomitant]

REACTIONS (1)
  - Unintended pregnancy [Unknown]
